FAERS Safety Report 25804793 (Version 1)
Quarter: 2025Q3

REPORT INFORMATION
  Report Type: Report from Study
  Country: CA (occurrence: CA)
  Receive Date: 20250915
  Receipt Date: 20250915
  Transmission Date: 20251021
  Serious: Yes (Hospitalization, Other)
  Sender: ABBVIE
  Company Number: CA-ABBVIE-6456202

PATIENT
  Age: 77 Year
  Sex: Female

DRUGS (4)
  1. RINVOQ [Suspect]
     Active Substance: UPADACITINIB
     Indication: Rheumatoid arthritis
     Dosage: STOP RINVOQ SEVERAL TIMES DUE TO BEING ILL
     Route: 048
     Dates: end: 2025
  2. RINVOQ [Suspect]
     Active Substance: UPADACITINIB
     Indication: Rheumatoid arthritis
     Dosage: STOPPED RINVOQ BEFORE SURGERY AND 2 WEEKS AFTER SURGERY
     Route: 048
     Dates: start: 2025, end: 202505
  3. RINVOQ [Suspect]
     Active Substance: UPADACITINIB
     Indication: Rheumatoid arthritis
     Dosage: START DATE 2025 AND END DATE 2025 ?STOP RINVOQ FOR SKIN GRAFT NOT HEALING
     Route: 048
  4. RINVOQ [Suspect]
     Active Substance: UPADACITINIB
     Indication: Rheumatoid arthritis
     Dosage: STARTED RINVOQ AGAIN 2 WEEKS AGO - 1 MONTH AGO
     Route: 048
     Dates: start: 202508

REACTIONS (8)
  - Incision site impaired healing [Unknown]
  - Feeling hot [Unknown]
  - Illness [Unknown]
  - Skin graft [Unknown]
  - Ulcer [Unknown]
  - Arthralgia [Unknown]
  - Rheumatoid arthritis [Unknown]
  - Skin graft [Recovered/Resolved]

NARRATIVE: CASE EVENT DATE: 20250101
